FAERS Safety Report 20693969 (Version 2)
Quarter: 2022Q2

REPORT INFORMATION
  Report Type: Report from Study
  Country: US (occurrence: US)
  Receive Date: 20220411
  Receipt Date: 20220628
  Transmission Date: 20220721
  Serious: No
  Sender: FDA-Public Use
  Company Number: US-ACADIA PHARMACEUTICALS INC.-ACA-2022-PIM-000969

PATIENT
  Age: 85 Year
  Sex: Female

DRUGS (20)
  1. NUPLAZID [Suspect]
     Active Substance: PIMAVANSERIN TARTRATE
     Indication: Parkinson^s disease psychosis
     Dosage: 34 MILLIGRAM, QD
     Route: 048
     Dates: start: 202112, end: 202201
  2. NUPLAZID [Suspect]
     Active Substance: PIMAVANSERIN TARTRATE
     Indication: Delusion
  3. NUPLAZID [Suspect]
     Active Substance: PIMAVANSERIN TARTRATE
     Indication: Hallucination
  4. ACETAMINOPHEN [Concomitant]
     Active Substance: ACETAMINOPHEN
     Indication: Pain
     Dosage: 325 MILLIGRAM, BID
     Route: 048
     Dates: start: 20181002
  5. ACETAMINOPHEN [Concomitant]
     Active Substance: ACETAMINOPHEN
     Dosage: 325 MILLIGRAM, BID
     Route: 048
     Dates: start: 20210810
  6. ACID REDUCER [RANITIDINE HYDROCHLORIDE] [Concomitant]
     Indication: Gastrooesophageal reflux disease
     Dosage: 10 MILLIGRAM AT BEDTIME
     Route: 048
     Dates: start: 20180620
  7. CARBIDOPA\LEVODOPA [Concomitant]
     Active Substance: CARBIDOPA\LEVODOPA
     Indication: Parkinson^s disease
     Dosage: 25-100MG (2 TABS 50-200MG FOUR TIME A DAY 5AM, 9AM, 1PM, 4PM)
     Route: 048
     Dates: start: 20211210
  8. CARBIDOPA\LEVODOPA [Concomitant]
     Active Substance: CARBIDOPA\LEVODOPA
     Dosage: 50-200 MG (1TAB AT BEDTIME) ER
     Dates: start: 20211210
  9. DICLOFENAC [Concomitant]
     Active Substance: DICLOFENAC
     Dosage: 1% GEL APPLY 4 GMS TO LEFT HIP TWICE A DAY
     Route: 061
     Dates: start: 20211210
  10. ENSURE CLEAR [Concomitant]
     Indication: Supplementation therapy
     Dosage: 1 BOTTLE TWICE A DAY MIXED FRUIT
     Route: 048
     Dates: start: 20200901
  11. GABAPENTIN [Concomitant]
     Active Substance: GABAPENTIN
     Indication: Neuropathy peripheral
     Dosage: 300 MILLIGRAM (1 CAP AT BEDTIME)
     Route: 048
  12. GABAPENTIN [Concomitant]
     Active Substance: GABAPENTIN
     Dosage: 300 MILLIGRAM, BID
     Dates: start: 20220225, end: 20220421
  13. GABAPENTIN [Concomitant]
     Active Substance: GABAPENTIN
     Dosage: 300 MILLIGRAM QHS
     Route: 048
  14. HYDRALAZINE [Concomitant]
     Active Substance: HYDRALAZINE HYDROCHLORIDE
     Indication: Hypertension
     Dosage: 10 MILLIGRAM, QD (1 TAB EVERY EVENING AFTER DINNER WITH FOOD)
     Route: 048
     Dates: start: 20211210
  15. POLYETHYLENE GLYCOL 3350 [Concomitant]
     Active Substance: POLYETHYLENE GLYCOL 3350
     Indication: Constipation
     Dosage: 17GM MIXED N 8 OZ WATER DAILY
     Route: 048
     Dates: start: 20220120
  16. SODIUM CHLORIDE [Concomitant]
     Active Substance: SODIUM CHLORIDE
     Indication: Supplementation therapy
     Dosage: 1 GM (1TAB EVERY MORNING)
     Route: 048
     Dates: start: 20211210
  17. SYSTANE (HYPROMELLOSE 2910 (4000 MPA.S)) [Concomitant]
     Active Substance: HYPROMELLOSE 2910 (4000 MPA.S)
     Indication: Dry eye
     Dosage: 1 DROP IN BOTH EYES 4 TIMES A DAY
     Route: 047
     Dates: start: 20210329
  18. BLINK TEARS [Concomitant]
     Active Substance: POLYETHYLENE GLYCOL 400
     Indication: Dry eye
     Dosage: INSTILL 1 DROP TWICE DAILY AS NEEDED
     Route: 047
  19. BISACODYL [Concomitant]
     Active Substance: BISACODYL
     Indication: Constipation
     Dosage: 10 MILLIGRAM, QD (INSERT 1 SUPPOSITORY DAILY AS NEEDED)
     Route: 054
     Dates: start: 20220119
  20. SENEXON-S [Concomitant]
     Active Substance: DOCUSATE SODIUM\SENNOSIDES A AND B
     Indication: Constipation
     Dosage: 1 TAB TWICE A DAY PRN
     Route: 048
     Dates: start: 20190322

REACTIONS (3)
  - Lethargy [Not Recovered/Not Resolved]
  - Drug ineffective [Unknown]
  - Hallucination [Not Recovered/Not Resolved]

NARRATIVE: CASE EVENT DATE: 20220112
